FAERS Safety Report 7731193-6 (Version None)
Quarter: 2011Q3

REPORT INFORMATION
  Report Type: 
  Country: None (occurrence: None)
  Receive Date: 20110906
  Receipt Date: 20110830
  Transmission Date: 20111222
  Serious: Yes (Other)
  Sender: FDA-Public Use
  Company Number: PHHY2011GB77132

PATIENT
  Age: 68 Year
  Sex: Male
  Weight: 86 kg

DRUGS (6)
  1. SIMVASTATIN [Suspect]
     Dosage: UNK UKN, UNK
     Route: 048
     Dates: start: 20110428
  2. RAMIPRIL [Concomitant]
     Dosage: UNK UKN, UNK
     Dates: start: 20110428, end: 20110815
  3. OMEPRAZOLE [Concomitant]
     Dosage: UNK UKN, UNK
     Dates: start: 20110428, end: 20110815
  4. DIHYDROCODEINE BITARTRATE INJ [Concomitant]
     Dosage: UNK UKN, UNK
     Dates: start: 20110524, end: 20110728
  5. BISOPROLOL FUMARATE [Concomitant]
     Dosage: UNK UKN, UNK
     Dates: start: 20110428, end: 20110815
  6. ACETAMINOPHEN [Concomitant]
     Dosage: UNK UKN, UNK
     Dates: start: 20110718, end: 20110730

REACTIONS (3)
  - MYALGIA [None]
  - MUSCLE SPASMS [None]
  - MUSCULOSKELETAL STIFFNESS [None]
